FAERS Safety Report 8027264-X (Version None)
Quarter: 2012Q1

REPORT INFORMATION
  Report Type: 
  Country: None (occurrence: None)
  Receive Date: 20120105
  Receipt Date: 20120105
  Transmission Date: 20120608
  Serious: Yes (Other)
  Sender: FDA-Public Use
  Company Number: None

PATIENT
  Sex: Male

DRUGS (2)
  1. SUTENT [Suspect]
     Indication: PANCREATIC CARCINOMA
     Dosage: 37.5MG DAILY PO
     Route: 048
     Dates: start: 20110523, end: 20111109
  2. SUTENT [Suspect]
     Indication: PANCREATIC CARCINOMA
     Dosage: 37.5MG DAILY PO
     Route: 048
     Dates: start: 20111220

REACTIONS (2)
  - BLOOD GLUCOSE INCREASED [None]
  - INTERNATIONAL NORMALISED RATIO INCREASED [None]
